FAERS Safety Report 8408711-8 (Version None)
Quarter: 2012Q2

REPORT INFORMATION
  Report Type: 
  Country: None (occurrence: None)
  Receive Date: 20120604
  Receipt Date: 20120530
  Transmission Date: 20120825
  Serious: Yes (Hospitalization)
  Sender: FDA-Public Use
  Company Number: JP-B.I. PHARMACEUTICALS,INC./RIDGEFIELD-2012-BP-12748NB

PATIENT
  Age: 79 Year
  Sex: Male

DRUGS (4)
  1. SPIRIVA [Suspect]
     Dosage: 5 MCG
     Route: 055
  2. TIRASHIZIN [Concomitant]
     Dosage: 50 MCG
     Route: 065
  3. ERYTHROMYCIN [Concomitant]
     Dosage: 300 MG
     Route: 065
  4. GASMOTIN [Concomitant]
     Dosage: 15 MG
     Route: 048

REACTIONS (1)
  - METASTATIC NEOPLASM [None]
